FAERS Safety Report 13364085 (Version 2)
Quarter: 2017Q1

REPORT INFORMATION
  Report Type: Report from Study
  Country: US (occurrence: US)
  Receive Date: 20170323
  Receipt Date: 20170328
  Transmission Date: 20170429
  Serious: Yes (Hospitalization)
  Sender: FDA-Public Use
  Company Number: US-JNJFOC-20170320892

PATIENT
  Age: 14 Year
  Sex: Female
  Weight: 40.8 kg

DRUGS (2)
  1. METHOTREXATE. [Concomitant]
     Active Substance: METHOTREXATE
     Route: 065
  2. REMICADE [Suspect]
     Active Substance: INFLIXIMAB
     Indication: INFLAMMATORY BOWEL DISEASE
     Route: 042
     Dates: start: 20150616

REACTIONS (2)
  - Dehydration [Recovered/Resolved]
  - Epstein-Barr virus infection [Recovered/Resolved with Sequelae]

NARRATIVE: CASE EVENT DATE: 20160904
